FAERS Safety Report 19202530 (Version 1)
Quarter: 2021Q2

REPORT INFORMATION
  Report Type: Spontaneous
  Country: US (occurrence: US)
  Receive Date: 20210430
  Receipt Date: 20210430
  Transmission Date: 20210717
  Serious: Yes (Other)
  Sender: FDA-Public Use
  Company Number: US-MYLANLABS-2021M1025200

PATIENT
  Age: 35 Year
  Sex: Male

DRUGS (3)
  1. CYCLOPHOSPHAMIDE. [Concomitant]
     Active Substance: CYCLOPHOSPHAMIDE
     Indication: HENOCH-SCHONLEIN PURPURA NEPHRITIS
     Dosage: 15 MILLIGRAM/KILOGRAM
     Route: 042
  2. PREDNISONE. [Concomitant]
     Active Substance: PREDNISONE
     Indication: HENOCH-SCHONLEIN PURPURA
     Dosage: 60 MILLIGRAM, QD
     Route: 048
  3. MYCOPHENOLATE MOFETIL. [Suspect]
     Active Substance: MYCOPHENOLATE MOFETIL
     Indication: HENOCH-SCHONLEIN PURPURA
     Dosage: 1 GRAM, BID
     Route: 048

REACTIONS (4)
  - Off label use [Unknown]
  - Pancytopenia [Unknown]
  - Haematochezia [Unknown]
  - Epistaxis [Unknown]
